FAERS Safety Report 4515593-3 (Version None)
Quarter: 2004Q4

REPORT INFORMATION
  Report Type: 
  Country: None (occurrence: None)
  Receive Date: 20040930
  Receipt Date: 20040325
  Transmission Date: 20050328
  Serious: Yes (Hospitalization)
  Sender: FDA-Public Use
  Company Number: US-JNJFOC-20040306503

PATIENT
  Sex: Male

DRUGS (2)
  1. DITROPAN XL [Suspect]
     Indication: HYPERTONIC BLADDER
     Dosage: 5 MG, ORAL
     Route: 048
  2. LEXAPRO [Concomitant]

REACTIONS (3)
  - DRY MOUTH [None]
  - PALPITATIONS [None]
  - TACHYCARDIA [None]
